FAERS Safety Report 15507538 (Version 3)
Quarter: 2020Q2

REPORT INFORMATION
  Report Type: Spontaneous
  Country: CZ (occurrence: CZ)
  Receive Date: 20181016
  Receipt Date: 20200520
  Transmission Date: 20200713
  Serious: Yes (Death, Hospitalization, Other)
  Sender: FDA-Public Use
  Company Number: CZ-SAKK-2018SA283717AA

PATIENT
  Age: 74 Year
  Sex: Male

DRUGS (5)
  1. NINTEDANIB [Suspect]
     Active Substance: NINTEDANIB
     Indication: LUNG CANCER METASTATIC
     Dosage: UNK, QCY
     Route: 065
     Dates: start: 20141004
  2. DOCETAXEL. [Suspect]
     Active Substance: DOCETAXEL
     Indication: LUNG CANCER METASTATIC
     Dosage: UNK, CYCLIC (6 CYCLES); CYCLICAL
     Route: 065
     Dates: start: 20141004, end: 201502
  3. NINTEDANIB [Suspect]
     Active Substance: NINTEDANIB
     Dosage: UNK
  4. DOCETAXEL. [Suspect]
     Active Substance: DOCETAXEL
     Dosage: UNK, QCY
     Dates: start: 201502, end: 201502
  5. ERLOTINIB [Suspect]
     Active Substance: ERLOTINIB
     Indication: LUNG CANCER METASTATIC
     Dosage: UNK
     Route: 065

REACTIONS (5)
  - Developmental regression [Unknown]
  - Neutropenia [Unknown]
  - Nausea [Unknown]
  - Malignant neoplasm progression [Fatal]
  - Vomiting [Unknown]

NARRATIVE: CASE EVENT DATE: 2014
